FAERS Safety Report 5014262-3 (Version None)
Quarter: 2006Q2

REPORT INFORMATION
  Report Type: 
  Country: None (occurrence: None)
  Receive Date: 20060414
  Receipt Date: 20060211
  Transmission Date: 20061013
  Serious: No
  Sender: FDA-Public Use
  Company Number: 2006SP000753

PATIENT
  Age: 83 Year
  Sex: Male
  Weight: 68.0396 kg

DRUGS (12)
  1. LUNESTA [Suspect]
     Indication: INSOMNIA
     Dosage: 3 MG;HS;ORAL
     Route: 048
     Dates: start: 20060101
  2. ACIPHEX [Concomitant]
  3. NEURONTIN [Concomitant]
  4. LASIX [Concomitant]
  5. ALLOPURINOL [Concomitant]
  6. TAMSULOSIN HCL [Concomitant]
  7. RANITIDINE [Concomitant]
  8. TRAMADOL HCL [Concomitant]
  9. TOPROL-XL [Concomitant]
  10. PLAVIX [Concomitant]
  11. VITAMIN E [Concomitant]
  12. TYLENOL (CAPLET) [Concomitant]

REACTIONS (3)
  - DRUG INEFFECTIVE [None]
  - DYSGEUSIA [None]
  - INITIAL INSOMNIA [None]
